FAERS Safety Report 7463629-2 (Version None)
Quarter: 2011Q2

REPORT INFORMATION
  Report Type: 
  Country: None (occurrence: None)
  Receive Date: 20110506
  Receipt Date: 20101207
  Transmission Date: 20111010
  Serious: Yes (Hospitalization, Other)
  Sender: FDA-Public Use
  Company Number: US-PFIZER INC-2010174904

PATIENT
  Age: 56 Year
  Sex: Female

DRUGS (8)
  1. NEBIVOLOL HCL [Suspect]
     Dosage: 10 MG, DAILY
  2. AMIODARONE HCL [Suspect]
     Dosage: 200 MG, 1X/DAY
     Route: 048
  3. DEXAMETHASONE [Suspect]
     Indication: MULTIPLE MYELOMA
     Dosage: 20 MG, UNK
     Dates: start: 20100507, end: 20101112
  4. LENALIDOMIDE [Suspect]
     Indication: MULTIPLE MYELOMA
     Dosage: 25 MG, UNK
     Dates: start: 20100507, end: 20101112
  5. FLUDROCORTISONE ACETATE [Suspect]
  6. ACETYLSALICYLIC ACID [Concomitant]
     Dosage: UNK
  7. BENICAR [Suspect]
     Dosage: 40 MG, DAILY
     Route: 049
  8. VELCADE [Suspect]
     Indication: MULTIPLE MYELOMA
     Dosage: 1.3 MG, UNK
     Route: 042
     Dates: start: 20100507, end: 20101112

REACTIONS (6)
  - HYPOTENSION [None]
  - GASTROINTESTINAL HAEMORRHAGE [None]
  - BLOOD PRESSURE FLUCTUATION [None]
  - PLATELET COUNT DECREASED [None]
  - MUSCULAR WEAKNESS [None]
  - DEHYDRATION [None]
